FAERS Safety Report 10079720 (Version 1)
Quarter: 2014Q2

REPORT INFORMATION
  Report Type: Spontaneous
  Country: US (occurrence: US)
  Receive Date: 20140415
  Receipt Date: 20140415
  Transmission Date: 20141212
  Serious: No
  Sender: FDA-Public Use
  Company Number: US-TEVA-454882USA

PATIENT
  Sex: 0

DRUGS (1)
  1. TRIAMCINOLONE [Suspect]

REACTIONS (2)
  - Drug hypersensitivity [Unknown]
  - Nasal congestion [Unknown]
